FAERS Safety Report 9538560 (Version 2)
Quarter: 2013Q3

REPORT INFORMATION
  Report Type: Spontaneous
  Country: US (occurrence: None)
  Receive Date: 20130507
  Receipt Date: 20130724
  Transmission Date: 20140515
  Serious: Yes (Other)
  Sender: FDA-Public Use
  Company Number: PHEH2013US001920

PATIENT
  Age: 74 Year
  Sex: Female
  Weight: 63.5 kg

DRUGS (3)
  1. AFINITOR [Suspect]
     Indication: BREAST CANCER METASTATIC
     Dosage: 10 MG, QD, ORAL
     Route: 048
  2. AROMASIN (EXEMESTANE) TABLET, 25 MG [Concomitant]
  3. CARVEDILOL (CARVEDILOL) TABLET, 6.25 MG [Concomitant]

REACTIONS (2)
  - Decreased appetite [None]
  - Diarrhoea [None]
